FAERS Safety Report 12471484 (Version 1)
Quarter: 2016Q2

REPORT INFORMATION
  Report Type: Spontaneous
  Country: IN (occurrence: IN)
  Receive Date: 20160616
  Receipt Date: 20160616
  Transmission Date: 20160815
  Serious: Yes (Hospitalization)
  Sender: FDA-Public Use
  Company Number: IN-G+W LABS-GW2016IN000041

PATIENT

DRUGS (8)
  1. DICLOFENAC [Suspect]
     Active Substance: DICLOFENAC
     Indication: BACK PAIN
     Dosage: UNK
     Route: 065
  2. DICLOFENAC [Suspect]
     Active Substance: DICLOFENAC
     Indication: JOINT SWELLING
  3. DICLOFENAC [Suspect]
     Active Substance: DICLOFENAC
     Indication: MUSCULOSKELETAL STIFFNESS
  4. ACETAMINOPHEN. [Suspect]
     Active Substance: ACETAMINOPHEN
     Indication: MUSCULOSKELETAL STIFFNESS
  5. ACETAMINOPHEN. [Suspect]
     Active Substance: ACETAMINOPHEN
     Indication: ARTHRALGIA
  6. ACETAMINOPHEN. [Suspect]
     Active Substance: ACETAMINOPHEN
     Indication: BACK PAIN
     Dosage: UNK
     Route: 065
  7. ACETAMINOPHEN. [Suspect]
     Active Substance: ACETAMINOPHEN
     Indication: JOINT SWELLING
  8. DICLOFENAC [Suspect]
     Active Substance: DICLOFENAC
     Indication: ARTHRALGIA

REACTIONS (3)
  - Renal cell carcinoma [Unknown]
  - Nephropathy toxic [Unknown]
  - Focal segmental glomerulosclerosis [Unknown]
